FAERS Safety Report 5806547-5 (Version None)
Quarter: 2008Q3

REPORT INFORMATION
  Report Type: 
  Country: None (occurrence: None)
  Receive Date: 20080710
  Receipt Date: 20080703
  Transmission Date: 20090109
  Serious: Yes (Other)
  Sender: FDA-Public Use
  Company Number: GB-BOEHRINGER INGELHEIM GMBH, GERMANY-2008-BP-10634BP

PATIENT
  Age: 34 Year
  Sex: Female

DRUGS (4)
  1. VIRAMUNE [Suspect]
     Indication: HIV INFECTION
     Route: 048
     Dates: start: 20070528, end: 20071122
  2. VIRAMUNE [Suspect]
     Route: 048
     Dates: start: 20070514, end: 20070528
  3. EPIVIR [Suspect]
     Indication: HIV INFECTION
     Route: 048
     Dates: start: 20060914, end: 20071122
  4. VIREAD [Suspect]
     Indication: HIV INFECTION
     Route: 048
     Dates: start: 20070914, end: 20071122

REACTIONS (1)
  - STILLBIRTH [None]
